FAERS Safety Report 5011831-1 (Version None)
Quarter: 2006Q2

REPORT INFORMATION
  Report Type: 
  Country: None (occurrence: None)
  Receive Date: 20060526
  Receipt Date: 20060518
  Transmission Date: 20061013
  Serious: Yes (Hospitalization)
  Sender: FDA-Public Use
  Company Number: US-ABBOTT-06P-163-0333481-00

PATIENT
  Sex: Male
  Weight: 75.818 kg

DRUGS (7)
  1. KALETRA [Suspect]
     Indication: HIV INFECTION
     Route: 048
     Dates: start: 19990101, end: 20060301
  2. KALETRA [Suspect]
     Indication: HIV INFECTION
     Dates: start: 20060301
  3. NEVIRAPINE [Concomitant]
     Indication: HIV INFECTION
     Route: 048
  4. LAMIVUDINE [Concomitant]
     Indication: HIV INFECTION
     Route: 048
  5. LEVOTHYROXINE SODIUM [Concomitant]
     Indication: HYPOTHYROIDISM
     Route: 048
  6. TESTOSTERONE [Concomitant]
     Indication: DRUG USE FOR UNKNOWN INDICATION
  7. CLONAZEPAM [Concomitant]
     Indication: ANXIETY
     Route: 048
     Dates: end: 20060418

REACTIONS (3)
  - BLEPHAROSPASM [None]
  - MUSCLE TWITCHING [None]
  - VOCAL CORD DISORDER [None]
